FAERS Safety Report 6664217-8 (Version None)
Quarter: 2010Q2

REPORT INFORMATION
  Report Type: 
  Country: None (occurrence: None)
  Receive Date: 20100401
  Receipt Date: 20091215
  Transmission Date: 20101027
  Serious: Yes (Other)
  Sender: FDA-Public Use
  Company Number: CHPA2009DE23657

PATIENT
  Age: 64 Year
  Sex: Male
  Weight: 73 kg

DRUGS (1)
  1. NICOTINELL COATED GUM 2 MG MINT (NCH) [Suspect]
     Indication: SMOKING CESSATION THERAPY
     Dosage: 60 MG, UNK
     Route: 048
     Dates: start: 20070101

REACTIONS (4)
  - INCORRECT DOSE ADMINISTERED [None]
  - INTENTIONAL DRUG MISUSE [None]
  - OVERDOSE [None]
  - VOCAL CORD DISORDER [None]
